FAERS Safety Report 8954839 (Version 1)
Quarter: 2012Q4

REPORT INFORMATION
  Report Type: 
  Country: IT (occurrence: IT)
  Receive Date: 20121210
  Receipt Date: 20121210
  Transmission Date: 20130627
  Serious: Yes (Hospitalization)
  Sender: FDA-Public Use
  Company Number: IT-BAYER-2012-127643

PATIENT
  Age: 73 Year
  Sex: Male

DRUGS (4)
  1. CIPROXIN [Suspect]
     Indication: KIDNEY PAIN
     Dosage: Daily dose 1000 mg
     Route: 048
     Dates: start: 20120629, end: 20120704
  2. TORADOL [Suspect]
     Indication: KIDNEY PAIN
     Dosage: 80 gtt, UNK
     Route: 048
     Dates: start: 20120629, end: 20120630
  3. TORADOL [Suspect]
     Indication: KIDNEY PAIN
     Dosage: 30 mg, UNK
     Route: 030
     Dates: start: 20120630, end: 20120630
  4. ORUDIS [Suspect]
     Indication: KIDNEY PAIN
     Dosage: 400 mg, UNK
     Route: 054
     Dates: start: 20120629, end: 20120630

REACTIONS (4)
  - Abdominal pain [Recovered/Resolved]
  - Renal failure [Recovered/Resolved]
  - Vomiting [Recovered/Resolved]
  - Drug abuse [Recovered/Resolved]
